FAERS Safety Report 7196928-2 (Version None)
Quarter: 2010Q4

REPORT INFORMATION
  Report Type: 
  Country: None (occurrence: None)
  Receive Date: 20101224
  Receipt Date: 20101217
  Transmission Date: 20110411
  Serious: Yes (Hospitalization)
  Sender: FDA-Public Use
  Company Number: US-BIOGENIDEC-2010BI039889

PATIENT
  Age: 44 Year
  Sex: Male

DRUGS (14)
  1. TYSABRI [Suspect]
     Indication: MULTIPLE SCLEROSIS
     Route: 042
     Dates: start: 20100812, end: 20100901
  2. BACLOFEN [Concomitant]
     Route: 048
  3. ZOCOR [Concomitant]
     Route: 048
  4. NALTREXONE HYDROCHLORIDE [Concomitant]
     Route: 048
  5. CLONAZEPAM [Concomitant]
     Route: 048
  6. CITALOPRAM HYDROBROMIDE [Concomitant]
     Route: 048
  7. ATENOLOL [Concomitant]
     Route: 048
  8. ISOSORBIDE MONONITRATE [Concomitant]
     Route: 048
  9. PLAVIX [Concomitant]
     Route: 048
  10. OMEPRAZOLE [Concomitant]
     Route: 048
  11. PEPCID [Concomitant]
     Route: 048
  12. DULCOLAX [Concomitant]
  13. XENADERM [Concomitant]
  14. VICODIN [Concomitant]
     Route: 048

REACTIONS (5)
  - DEVICE RELATED INFECTION [None]
  - LETHARGY [None]
  - LOCALISED INFECTION [None]
  - SEPTIC ENCEPHALOPATHY [None]
  - STAPHYLOCOCCAL SEPSIS [None]
